FAERS Safety Report 9361062 (Version 1)
Quarter: 2013Q2

REPORT INFORMATION
  Report Type: Spontaneous
  Country: US (occurrence: US)
  Receive Date: 20130621
  Receipt Date: 20130621
  Transmission Date: 20140414
  Serious: Yes (Other)
  Sender: FDA-Public Use
  Company Number: US-ASTELLAS-2013US006278

PATIENT
  Sex: Male

DRUGS (2)
  1. XTANDI [Suspect]
     Indication: PRODUCT USED FOR UNKNOWN INDICATION
     Dosage: 160 MG, UID/QD
     Route: 048
     Dates: start: 20130420, end: 2013
  2. XTANDI [Suspect]
     Dosage: 2 TABLETS IN THE MORNING, TWO TABLETS IN THE EVENING
     Route: 048
     Dates: start: 2013

REACTIONS (3)
  - Incorrect dose administered [Unknown]
  - Hypopnoea [Unknown]
  - Fatigue [Unknown]
